FAERS Safety Report 21147935 (Version 1)
Quarter: 2022Q3

REPORT INFORMATION
  Report Type: Spontaneous
  Country: DE (occurrence: DE)
  Receive Date: 20220729
  Receipt Date: 20220729
  Transmission Date: 20221027
  Serious: No
  Sender: FDA-Public Use
  Company Number: None

PATIENT
  Age: 29 Year
  Sex: Female
  Weight: 66 kg

DRUGS (1)
  1. CEFUROXIME AXETIL [Suspect]
     Active Substance: CEFUROXIME AXETIL
     Indication: Pharyngitis
     Dosage: UNK
     Route: 048
     Dates: start: 20220207, end: 20220209

REACTIONS (10)
  - Vomiting [Recovered/Resolved]
  - Diarrhoea [Recovered/Resolved]
  - Abdominal pain upper [Unknown]
  - Abdominal pain [Unknown]
  - Dehydration [Unknown]
  - Anxiety [Unknown]
  - Cardiovascular disorder [Unknown]
  - Hypophagia [Unknown]
  - Fluid intake reduced [Unknown]
  - Dizziness [Unknown]

NARRATIVE: CASE EVENT DATE: 20220201
